FAERS Safety Report 24744389 (Version 1)
Quarter: 2024Q4

REPORT INFORMATION
  Report Type: Spontaneous
  Country: US (occurrence: None)
  Receive Date: 20241217
  Receipt Date: 20241217
  Transmission Date: 20250115
  Serious: Yes (Hospitalization)
  Sender: Public
  Company Number: None

PATIENT
  Sex: Female

DRUGS (2)
  1. DROXIDOPA [Suspect]
     Active Substance: DROXIDOPA
     Indication: Syncope
     Dosage: FREQUENCY : 3 TIMES A DAY;?
     Route: 048
     Dates: start: 202104
  2. DROXIDOPA [Suspect]
     Active Substance: DROXIDOPA
     Indication: Circulatory collapse

REACTIONS (1)
  - Osteomyelitis [None]
